FAERS Safety Report 7275427-3 (Version None)
Quarter: 2011Q1

REPORT INFORMATION
  Report Type: 
  Country: None (occurrence: None)
  Receive Date: 20110204
  Receipt Date: 20110202
  Transmission Date: 20110831
  Serious: Yes (Death, Hospitalization, Other)
  Sender: FDA-Public Use
  Company Number: HU-ELI_LILLY_AND_COMPANY-HU201010001160

PATIENT
  Sex: Male
  Weight: 104 kg

DRUGS (10)
  1. PEMETREXED [Suspect]
     Indication: NON-SMALL CELL LUNG CANCER
     Dosage: 1300 MG, UNK
     Dates: start: 20100707, end: 20100914
  2. CISPLATIN [Suspect]
     Indication: NON-SMALL CELL LUNG CANCER
     Dosage: 195 MG, UNK
     Dates: start: 20100707, end: 20100914
  3. VITAMIN B-12 [Concomitant]
  4. FOLATE [Concomitant]
  5. DEXAMETHASONE [Concomitant]
  6. NECITUMUMAB (11F8) (LY3012211) [Suspect]
     Indication: NON-SMALL CELL LUNG CANCER
     Dosage: 900 MG, UNK
     Dates: start: 20100707, end: 20100810
  7. EPREX [Concomitant]
     Dosage: 9 ME, UNK
     Dates: start: 20100927
  8. CIPRO [Concomitant]
     Dosage: UNK, UNK
     Dates: start: 20100927, end: 20101012
  9. KALIUM [Concomitant]
     Dates: start: 20100927
  10. NEUPOGEN [Concomitant]
     Dates: start: 20100927, end: 20101011

REACTIONS (5)
  - ASTHENIA [None]
  - NEOPLASM MALIGNANT [None]
  - SEPSIS [None]
  - ANAEMIA [None]
  - DIARRHOEA [None]
